FAERS Safety Report 4642153-6 (Version None)
Quarter: 2005Q2

REPORT INFORMATION
  Report Type: 
  Country: None (occurrence: None)
  Receive Date: 20050421
  Receipt Date: 20050405
  Transmission Date: 20051028
  Serious: Yes (Other)
  Sender: FDA-Public Use
  Company Number: 2005054697

PATIENT
  Age: 55 Year
  Sex: Female
  Weight: 92.0802 kg

DRUGS (3)
  1. BENADRYL CREAM EXTRA STRENGTH (DIPHENHYDRAMINE, ZINC ACETATE) [Suspect]
     Indication: ARTHROPOD BITE
     Dosage: TOPICAL
     Route: 061
     Dates: start: 20050404, end: 20050405
  2. ANTIHYPERTENSIVES [Concomitant]
  3. DRUG, UNSPECIFIED [Concomitant]

REACTIONS (4)
  - INCOHERENT [None]
  - INSOMNIA [None]
  - LOSS OF CONSCIOUSNESS [None]
  - UNEVALUABLE EVENT [None]
